FAERS Safety Report 17119787 (Version 1)
Quarter: 2019Q4

REPORT INFORMATION
  Report Type: Spontaneous
  Country: DK (occurrence: DK)
  Receive Date: 20191206
  Receipt Date: 20191206
  Transmission Date: 20200122
  Serious: Yes (Other)
  Sender: FDA-Public Use
  Company Number: DK-TEVA-2019-DK-1147162

PATIENT
  Age: 19 Year
  Sex: Female
  Weight: 55 kg

DRUGS (3)
  1. METHYLPHENIDATE ^ACTAVIS^ [Concomitant]
     Active Substance: METHYLPHENIDATE
     Indication: ATTENTION DEFICIT/HYPERACTIVITY DISORDER
     Dosage: STRENGTH: 18 MG
     Route: 048
     Dates: start: 201903
  2. LAMOTRIGIN ^AUROBINDO^, TABLETTER 100 MG [Suspect]
     Active Substance: LAMOTRIGINE
     Indication: BIPOLAR DISORDER
     Dosage: STRENGTH: 25 MG?INCREASE FROM 25-200 MG DAILY
     Route: 048
     Dates: start: 20190711, end: 20190901
  3. LAMOTRIGIN ^TEVA^ [Suspect]
     Active Substance: LAMOTRIGINE
     Indication: BIPOLAR DISORDER
     Dosage: STRENGTH: 100 MG?INCREASE FROM 25-200 MG DAILY
     Route: 048
     Dates: start: 20190711, end: 20190901

REACTIONS (4)
  - Panic attack [Recovered/Resolved]
  - Hallucination [Recovered/Resolved]
  - Restlessness [Recovered/Resolved]
  - Anxiety [Recovered/Resolved]

NARRATIVE: CASE EVENT DATE: 201908
